FAERS Safety Report 8607798-7 (Version None)
Quarter: 2012Q3

REPORT INFORMATION
  Report Type: 
  Country: None (occurrence: None)
  Receive Date: 20120821
  Receipt Date: 20120816
  Transmission Date: 20120928
  Serious: Yes (Hospitalization, Disabling)
  Sender: FDA-Public Use
  Company Number: PHHY2012TW071257

PATIENT
  Sex: Male
  Weight: 68 kg

DRUGS (3)
  1. SENNAPUR [Concomitant]
     Indication: CONSTIPATION
     Dosage: 1 DF, BID
  2. EXELON [Suspect]
     Indication: DEMENTIA
     Dosage: 4.6 MG/24 HOURS
     Route: 062
     Dates: start: 20120202, end: 20120816
  3. NORVASC [Concomitant]
     Indication: HYPERTENSION
     Dosage: 5 MG, UNK

REACTIONS (3)
  - ROAD TRAFFIC ACCIDENT [None]
  - SUBDURAL HAEMATOMA [None]
  - HEMIPARESIS [None]
